FAERS Safety Report 21016232 (Version 1)
Quarter: 2022Q2

REPORT INFORMATION
  Report Type: Spontaneous
  Country: FR (occurrence: FR)
  Receive Date: 20220628
  Receipt Date: 20220628
  Transmission Date: 20220721
  Serious: Yes (Hospitalization)
  Sender: FDA-Public Use
  Company Number: None

PATIENT
  Age: 58 Year
  Sex: Male
  Weight: 65 kg

DRUGS (8)
  1. ETOPOSIDE PHOSPHATE [Suspect]
     Active Substance: ETOPOSIDE PHOSPHATE
     Indication: Acute myeloid leukaemia
     Dosage: 200 MG/M2 INTRAVENOUS 390 MG/D ON D8 TO D10
     Route: 042
     Dates: start: 20220128, end: 20220128
  2. MITOXANTRONE HYDROCHLORIDE [Suspect]
     Active Substance: MITOXANTRONE HYDROCHLORIDE
     Indication: Acute myeloid leukaemia
     Dosage: 15 MG/M2 INTRAVENOUS 29 MG/D D1 TO D3
     Route: 042
     Dates: start: 20220121, end: 20220128
  3. METHOTREXATE [Suspect]
     Active Substance: METHOTREXATE
     Indication: Acute myeloid leukaemia
     Dosage: INTRA-SPINAL METHOTREXATE 15 MG/D AT D5
     Route: 024
     Dates: start: 20220125, end: 20220125
  4. DEPO-MEDROL [Suspect]
     Active Substance: METHYLPREDNISOLONE ACETATE
     Indication: Acute myeloid leukaemia
     Dosage: INTRASPINAL 40 MG/D AT D5
     Route: 024
     Dates: start: 20220125, end: 20220125
  5. CYTARABINE [Suspect]
     Active Substance: CYTARABINE
     Indication: Acute myeloid leukaemia
     Dosage: 500 MG/M2 INTRAVENOUS 980 MG/D D1 TO D3 AND D8 TO D10
     Route: 042
     Dates: start: 20220121, end: 20220128
  6. CYTARABINE [Suspect]
     Active Substance: CYTARABINE
     Indication: Acute myeloid leukaemia
     Dosage: INTRARACHIDIAN 40 MG/D ON D5
     Route: 024
     Dates: start: 20220125, end: 20220125
  7. ONDANSETRON [Concomitant]
     Active Substance: ONDANSETRON
     Route: 065
  8. EMEND [Concomitant]
     Active Substance: APREPITANT
     Route: 065

REACTIONS (2)
  - Febrile bone marrow aplasia [Recovered/Resolved]
  - Septic shock [Unknown]

NARRATIVE: CASE EVENT DATE: 20220129
